FAERS Safety Report 15799867 (Version 4)
Quarter: 2019Q2

REPORT INFORMATION
  Report Type: Spontaneous
  Country: NL (occurrence: NL)
  Receive Date: 20190108
  Receipt Date: 20190426
  Transmission Date: 20190711
  Serious: Yes (Life-Threatening, Hospitalization)
  Sender: FDA-Public Use
  Company Number: NL-TEVA-2019-NL-995629

PATIENT
  Age: 52 Year
  Sex: Female
  Weight: 100 kg

DRUGS (7)
  1. TRAZODON [Concomitant]
     Active Substance: TRAZODONE HYDROCHLORIDE
     Dosage: 100 MILLIGRAM DAILY;
  2. DIAZEPAM. [Concomitant]
     Active Substance: DIAZEPAM
     Dosage: 25 MILLIGRAM PER DAY
  3. OAC [Concomitant]
  4. LEVOMEPROMAZINE TABLET, 12,5 MG (MILLIGRAM) [Suspect]
     Active Substance: LEVOMEPROMAZINE
     Indication: SLEEP DISORDER
     Dosage: 50 GRAM DAILY;  TABLET, 12,5 MG (MILLIGRAM)
     Dates: start: 201810, end: 20181205
  5. QUETIAPINE. [Suspect]
     Active Substance: QUETIAPINE
     Indication: ANXIETY
     Dosage: 75 MILLIGRAM DAILY;
     Route: 065
     Dates: start: 2011
  6. NORTRIPTYLINE [Concomitant]
     Active Substance: NORTRIPTYLINE
     Dosage: 50 MILLIGRAM DAILY;
  7. QUETIAPINE. [Suspect]
     Active Substance: QUETIAPINE
     Indication: SLEEP DISORDER

REACTIONS (1)
  - Pulmonary embolism [Recovering/Resolving]

NARRATIVE: CASE EVENT DATE: 20181205
